FAERS Safety Report 23980554 (Version 2)
Quarter: 2024Q2

REPORT INFORMATION
  Report Type: Report from Study
  Country: US (occurrence: US)
  Receive Date: 20240617
  Receipt Date: 20240620
  Transmission Date: 20240716
  Serious: Yes (Hospitalization)
  Sender: FDA-Public Use
  Company Number: US-ABBVIE-5801450

PATIENT
  Age: 85 Year
  Sex: Male

DRUGS (1)
  1. ALPHAGAN P [Suspect]
     Active Substance: BRIMONIDINE TARTRATE
     Indication: Product used for unknown indication
     Dosage: 1 DROP ON BOTH EYES FORM STRENGTH: 0.1 PERCENT, 1MG/ML SOL?0.1%
     Route: 047

REACTIONS (3)
  - Respiratory disorder [Not Recovered/Not Resolved]
  - Pancreatitis [Unknown]
  - Unevaluable event [Unknown]

NARRATIVE: CASE EVENT DATE: 20240501
